FAERS Safety Report 12869744 (Version 1)
Quarter: 2016Q4

REPORT INFORMATION
  Report Type: Report from Study
  Country: US (occurrence: US)
  Receive Date: 20161020
  Receipt Date: 20161020
  Transmission Date: 20170207
  Serious: No
  Sender: FDA-Public Use
  Company Number: US-AMGEN-USASL2016115079

PATIENT
  Age: 35 Year
  Sex: Female
  Weight: 58.6 kg

DRUGS (17)
  1. CORLANOR [Suspect]
     Active Substance: IVABRADINE HYDROCHLORIDE
     Indication: PRODUCT USED FOR UNKNOWN INDICATION
     Dosage: 5 MG, BID
     Route: 048
  2. DIPROLENE [Concomitant]
     Active Substance: BETAMETHASONE DIPROPIONATE
     Dosage: UNK APPLY TO AFFACTED AREA TWICE DAILY AS NEEDED
  3. TEMOVATE [Concomitant]
     Active Substance: CLOBETASOL PROPIONATE
     Dosage: UNK, ON AFFECTED AREA OF VULVA, PERIANAL ADN VAGINAL BID UNTIL SYMPTOMS IMPROVE THEN QHS X 1WEEK
  4. CARDIZEM [Concomitant]
     Active Substance: DILTIAZEM HYDROCHLORIDE
     Dosage: 240 MG, QD
     Route: 048
  5. KENALOG IN ORABASE [Concomitant]
     Active Substance: TRIAMCINOLONE ACETONIDE
     Indication: MOUTH ULCERATION
     Dosage: UNK UNK, BID ( TO AFFECTED AREA OF MOUTH)
  6. XOPENEX [Concomitant]
     Active Substance: LEVALBUTEROL HYDROCHLORIDE
     Dosage: UNK UNK, Q8H ( 1 AMPULE EVERY 8 HOURS AS NEEDED)
  7. XOPENEX HFA [Concomitant]
     Active Substance: LEVALBUTEROL TARTRATE
     Dosage: UNK UNK, Q4H INHALE 2 PUFFS BY MOUTH
  8. ESTRACE [Concomitant]
     Active Substance: ESTRADIOL
     Route: 048
  9. PREDNISONE. [Concomitant]
     Active Substance: PREDNISONE
     Dosage: UNK 4 TABLETS DAILYX5 DAYS, 3 TABLETS DAILY X5 DAYS, 2 TABLETS DAILY X5 DAYS AND 1 TABLETS DAILY X5D
  10. DIFLUCAN [Concomitant]
     Active Substance: FLUCONAZOLE
     Dosage: 100 MG, QOD
     Route: 048
  11. DECADRON [Concomitant]
     Active Substance: DEXAMETHASONE
     Dosage: UNK, BID (1 TEASPOON OF SOLUTION BID SWISH FOR 1 MINUTE BEFORE SPITTING)
  12. PROBIOTIC [Concomitant]
     Active Substance: PROBIOTICS NOS
     Route: 048
  13. PULMICORT TURBUHALER [Concomitant]
     Active Substance: BUDESONIDE
     Dosage: UNK UNK, BID INHALE 2 PUFFS BY MOUTH
  14. ATIVAN [Concomitant]
     Active Substance: LORAZEPAM
     Dosage: 1 UNK, Q6H
     Route: 048
  15. ANORO ELLIPTA [Concomitant]
     Active Substance: UMECLIDINIUM BROMIDE\VILANTEROL TRIFENATATE
     Dosage: 1 DF, QD (ONE PUFF)
     Route: 048
  16. ASTELIN [Concomitant]
     Active Substance: AZELASTINE HYDROCHLORIDE
     Dosage: UNK UNK, BID  1 -2 SPRAYS TO EACH NOSTRILS
  17. MEDROL [Concomitant]
     Active Substance: METHYLPREDNISOLONE
     Dosage: UNK

REACTIONS (3)
  - Blood pressure abnormal [Unknown]
  - Off label use [Unknown]
  - Heart rate increased [Unknown]
